FAERS Safety Report 4732197-8 (Version None)
Quarter: 2005Q3

REPORT INFORMATION
  Report Type: 
  Country: None (occurrence: None)
  Receive Date: 20050721
  Receipt Date: 20050606
  Transmission Date: 20060218
  Serious: No
  Sender: FDA-Public Use
  Company Number: 2005SP001224

PATIENT
  Age: 54 Year
  Sex: Male
  Weight: 72.5755 kg

DRUGS (3)
  1. LUNESTA [Suspect]
     Indication: INSOMNIA
     Dosage: 3 MG;HS;ORAL
     Route: 048
     Dates: start: 20050501
  2. PRAVACHOL [Concomitant]
  3. VITAMINS [Concomitant]

REACTIONS (1)
  - DYSGEUSIA [None]
